FAERS Safety Report 5131714-6 (Version None)
Quarter: 2006Q4

REPORT INFORMATION
  Report Type: 
  Country: None (occurrence: None)
  Receive Date: 20061020
  Receipt Date: 20061019
  Transmission Date: 20070319
  Serious: Yes (Hospitalization)
  Sender: FDA-Public Use
  Company Number: ES-ROXANE LABORATORIES, INC-2006-BP-12272RO

PATIENT
  Age: 29 Year
  Sex: Female

DRUGS (4)
  1. LITHIUM CARBONATE [Suspect]
     Indication: BIPOLAR DISORDER
     Dosage: 400 MG X 100 TABS (INT. OVERDOSE)
     Route: 048
  2. MIRTAZAPINE [Suspect]
     Indication: BIPOLAR DISORDER
     Dosage: 30 MG/DAY
  3. REBOXETINE [Suspect]
     Indication: BIPOLAR DISORDER
     Dosage: 8 MG/DAY
  4. CLONAZEPAM [Suspect]
     Indication: BIPOLAR DISORDER
     Dosage: 4 MG/DAY

REACTIONS (13)
  - BLOOD CREATININE INCREASED [None]
  - BLOOD PRESSURE DECREASED [None]
  - BLOOD SODIUM DECREASED [None]
  - BRADYPHRENIA [None]
  - CONFUSIONAL STATE [None]
  - HAEMODIALYSIS [None]
  - HEART RATE INCREASED [None]
  - INCORRECT DOSE ADMINISTERED [None]
  - POLYURIA [None]
  - STUPOR [None]
  - SUICIDE ATTEMPT [None]
  - THERAPEUTIC AGENT TOXICITY [None]
  - TREMOR [None]
